FAERS Safety Report 9596270 (Version 1)
Quarter: 2013Q4

REPORT INFORMATION
  Report Type: Spontaneous
  Country: FR (occurrence: FR)
  Receive Date: 20131004
  Receipt Date: 20131004
  Transmission Date: 20140711
  Serious: Yes (Death)
  Sender: FDA-Public Use
  Company Number: FR-JNJFOC-20130914713

PATIENT
  Sex: 0

DRUGS (7)
  1. 2-CHLORODEOXYADENOSINE [Suspect]
     Indication: LANGERHANS^ CELL HISTIOCYTOSIS
     Route: 065
  2. CYTARABINE [Suspect]
     Indication: LANGERHANS^ CELL HISTIOCYTOSIS
     Route: 065
  3. PREDNISONE [Suspect]
     Indication: LANGERHANS^ CELL HISTIOCYTOSIS
     Dosage: 40 MG/M2/DAY
     Route: 065
  4. VINBLASTINE [Suspect]
     Indication: LANGERHANS^ CELL HISTIOCYTOSIS
     Dosage: 6 MG/M2/DAY
     Route: 065
  5. CYCLOSPORINE [Suspect]
     Indication: LANGERHANS^ CELL HISTIOCYTOSIS
     Route: 065
  6. VP16 [Suspect]
     Indication: LANGERHANS^ CELL HISTIOCYTOSIS
     Route: 065
  7. METHOTREXATE [Suspect]
     Indication: LANGERHANS^ CELL HISTIOCYTOSIS
     Route: 065

REACTIONS (2)
  - Toxicity to various agents [Fatal]
  - Sepsis [Fatal]
